FAERS Safety Report 6205423-6 (Version None)
Quarter: 2009Q2

REPORT INFORMATION
  Report Type: 
  Country: None (occurrence: None)
  Receive Date: 20090527
  Receipt Date: 20090316
  Transmission Date: 20091009
  Serious: No
  Sender: FDA-Public Use
  Company Number: US-ABBOTT-09P-163-0563187-00

PATIENT
  Sex: Male
  Weight: 115.32 kg

DRUGS (1)
  1. SIMCOR [Suspect]
     Indication: BLOOD CHOLESTEROL INCREASED
     Dates: start: 20090101

REACTIONS (3)
  - FEELING HOT [None]
  - MIDDLE INSOMNIA [None]
  - PARAESTHESIA [None]
